FAERS Safety Report 24270687 (Version 1)
Quarter: 2024Q3

REPORT INFORMATION
  Report Type: Spontaneous
  Country: DE (occurrence: DE)
  Receive Date: 20240831
  Receipt Date: 20240831
  Transmission Date: 20241017
  Serious: Yes (Hospitalization, Other)
  Sender: NOVITIUM PHARMA
  Company Number: DE-NOVITIUMPHARMA-2024DENVP01735

PATIENT
  Age: 12 Week
  Sex: Male

DRUGS (6)
  1. LIDOCAINE HYDROCHLORIDE [Suspect]
     Active Substance: LIDOCAINE HYDROCHLORIDE
     Indication: Nerve block
     Route: 042
  2. MIDAZOLAM [Concomitant]
     Active Substance: MIDAZOLAM
     Indication: Seizure
  3. LEVETIRACETAM [Concomitant]
     Active Substance: LEVETIRACETAM
     Indication: Seizure
  4. ESKETAMINE [Concomitant]
     Active Substance: ESKETAMINE
     Indication: Anaesthesia
  5. REMIFENTANIL [Concomitant]
     Active Substance: REMIFENTANIL
     Indication: Anaesthesia
  6. Vecuronium-bromide [Concomitant]
     Indication: Anaesthesia

REACTIONS (5)
  - Toxicity to various agents [Unknown]
  - Seizure [Recovered/Resolved]
  - Tachycardia [Recovered/Resolved]
  - Accidental overdose [Unknown]
  - Incorrect route of product administration [Unknown]
